FAERS Safety Report 6468196-8 (Version None)
Quarter: 2009Q4

REPORT INFORMATION
  Report Type: 
  Country: None (occurrence: None)
  Receive Date: 20091127
  Receipt Date: 20091109
  Transmission Date: 20100525
  Serious: Yes (Other)
  Sender: FDA-Public Use
  Company Number: 2009SP035316

PATIENT
  Age: 0 Year
  Sex: Female
  Weight: 5.35 kg

DRUGS (3)
  1. TRIDERM [Suspect]
     Indication: DERMATITIS DIAPER
     Dosage: BID; TOP
     Route: 061
     Dates: start: 20090710, end: 20090812
  2. CEBION [Concomitant]
  3. MULTI-VITAMINS [Concomitant]

REACTIONS (3)
  - APPLICATION SITE ULCER [None]
  - BODY TEMPERATURE INCREASED [None]
  - SECRETION DISCHARGE [None]
